FAERS Safety Report 24137256 (Version 2)
Quarter: 2025Q4

REPORT INFORMATION
  Report Type: Report from Study
  Country: US (occurrence: None)
  Receive Date: 20240725
  Receipt Date: 20251125
  Transmission Date: 20260118
  Serious: Yes (Other)
  Sender: UCB
  Company Number: US-UCBSA-2024032378

PATIENT
  Age: 65 Year

DRUGS (2)
  1. CERTOLIZUMAB PEGOL [Suspect]
     Active Substance: CERTOLIZUMAB PEGOL
     Indication: Ankylosing spondylitis
     Dosage: 400 MILLIGRAM, EV 2 WEEKS(QOW)
  2. CERTOLIZUMAB PEGOL [Suspect]
     Active Substance: CERTOLIZUMAB PEGOL
     Dosage: 400 MILLIGRAM, EV 2 WEEKS(QOW)

REACTIONS (5)
  - Ankylosing spondylitis [Recovering/Resolving]
  - Vertebroplasty [Not Recovered/Not Resolved]
  - Spinal fracture [Not Recovered/Not Resolved]
  - Needle issue [Unknown]
  - Pain in extremity [Not Recovered/Not Resolved]
